FAERS Safety Report 16908521 (Version 1)
Quarter: 2019Q4

REPORT INFORMATION
  Report Type: Spontaneous
  Country: US (occurrence: US)
  Receive Date: 20191010
  Receipt Date: 20191010
  Transmission Date: 20200122
  Serious: No
  Sender: FDA-Public Use
  Company Number: None

PATIENT
  Age: 56 Year
  Sex: Female
  Weight: 72 kg

DRUGS (1)
  1. DICLOFENAC EPOLAMINE TOPICAL PATCH 1.3% [Suspect]
     Active Substance: DICLOFENAC EPOLAMINE
     Indication: BACK PAIN
     Dosage: ?          OTHER STRENGTH:1.3%;QUANTITY:1 PATCH(ES);?
     Route: 062
     Dates: start: 20190701, end: 20190801

REACTIONS (6)
  - Application site scar [None]
  - Application site discolouration [None]
  - Application site bruise [None]
  - Product substitution issue [None]
  - Device adhesion issue [None]
  - Application site burn [None]

NARRATIVE: CASE EVENT DATE: 20190801
